FAERS Safety Report 14987377 (Version 1)
Quarter: 2018Q2

REPORT INFORMATION
  Report Type: Report from Study
  Country: US (occurrence: US)
  Receive Date: 20180608
  Receipt Date: 20180608
  Transmission Date: 20180711
  Serious: Yes (Other)
  Sender: FDA-Public Use
  Company Number: US-AMGEN-USASL2018076370

PATIENT
  Age: 76 Year
  Sex: Female

DRUGS (2)
  1. GLEEVEC [Concomitant]
     Active Substance: IMATINIB MESYLATE
     Dosage: UNK
  2. REPATHA [Suspect]
     Active Substance: EVOLOCUMAB
     Indication: BLOOD CHOLESTEROL INCREASED
     Dosage: UNK, Q2WK
     Route: 065

REACTIONS (1)
  - Acute myeloid leukaemia recurrent [Unknown]
